FAERS Safety Report 17464901 (Version 1)
Quarter: 2020Q1

REPORT INFORMATION
  Report Type: Spontaneous
  Country: US (occurrence: US)
  Receive Date: 20200226
  Receipt Date: 20200226
  Transmission Date: 20200409
  Serious: No
  Sender: FDA-Public Use
  Company Number: US-ROCHE-2431468

PATIENT
  Age: 71 Year
  Sex: Female
  Weight: 57.66 kg

DRUGS (1)
  1. ALECENSA [Suspect]
     Active Substance: ALECTINIB HYDROCHLORIDE
     Indication: NON-SMALL CELL LUNG CANCER
     Route: 048
     Dates: start: 20190418

REACTIONS (2)
  - Blood creatinine increased [Unknown]
  - Product storage error [Unknown]

NARRATIVE: CASE EVENT DATE: 20190521
